FAERS Safety Report 6718755-X (Version None)
Quarter: 2010Q2

REPORT INFORMATION
  Report Type: 
  Country: None (occurrence: None)
  Receive Date: 20100511
  Receipt Date: 20100502
  Transmission Date: 20101027
  Serious: Yes (Hospitalization)
  Sender: FDA-Public Use
  Company Number: IL-BIOGENIDEC-2010BI012335

PATIENT
  Age: 33 Year
  Sex: Female

DRUGS (13)
  1. TYSABRI [Suspect]
     Indication: PROGRESSIVE RELAPSING MULTIPLE SCLEROSIS
     Route: 042
     Dates: start: 20090901, end: 20100301
  2. BACLOSAL [Concomitant]
     Indication: MUSCLE SPASTICITY
  3. BACLOSAL [Concomitant]
     Indication: PAIN
  4. MARCAINE [Concomitant]
     Indication: MUSCLE SPASTICITY
  5. MARCAINE [Concomitant]
     Indication: PAIN
  6. EFFEXOR [Concomitant]
     Indication: DEPRESSION
     Route: 048
     Dates: start: 20050101
  7. EFFEXOR [Concomitant]
     Indication: SLEEP DISORDER
     Route: 048
     Dates: start: 20050101
  8. MORPHINE [Concomitant]
     Indication: MUSCLE SPASTICITY
  9. MORPHINE [Concomitant]
     Indication: PAIN
  10. NEURONTIN [Concomitant]
     Indication: PAIN
     Route: 048
     Dates: start: 20000101
  11. BONDORMIN [Concomitant]
     Route: 048
     Dates: start: 20080101
  12. BONDORMIN [Concomitant]
     Indication: SLEEP DISORDER
     Route: 048
     Dates: start: 20080101
  13. OXYCONTIN [Concomitant]
     Indication: PAIN
     Route: 048

REACTIONS (1)
  - HEPATITIS ACUTE [None]
